FAERS Safety Report 11876358 (Version 1)
Quarter: 2015Q4

REPORT INFORMATION
  Report Type: Report from Study
  Country: PL (occurrence: PL)
  Receive Date: 20151229
  Receipt Date: 20151229
  Transmission Date: 20160305
  Serious: Yes (Hospitalization)
  Sender: FDA-Public Use
  Company Number: PL-BIOGEN-2015BI007933

PATIENT
  Age: 43 Year
  Sex: Female
  Weight: 75 kg

DRUGS (3)
  1. BIIB033 [Suspect]
     Active Substance: OPICINUMAB
     Indication: MULTIPLE SCLEROSIS
     Route: 042
     Dates: start: 20140129
  2. AVONEX [Concomitant]
     Active Substance: INTERFERON BETA-1A
     Route: 030
     Dates: start: 20140129
  3. FERROUS SULFATE [Concomitant]
     Active Substance: FERROUS SULFATE\FERROUS SULFATE, DRIED

REACTIONS (1)
  - Secondary progressive multiple sclerosis [Recovered/Resolved]

NARRATIVE: CASE EVENT DATE: 20150119
